FAERS Safety Report 19472262 (Version 3)
Quarter: 2021Q4

REPORT INFORMATION
  Report Type: Spontaneous
  Country: GR (occurrence: GR)
  Receive Date: 20210629
  Receipt Date: 20211019
  Transmission Date: 20220303
  Serious: Yes (Hospitalization, Other)
  Sender: FDA-Public Use
  Company Number: GR-MYLANLABS-2021M1037927

PATIENT
  Age: 67 Year
  Sex: Female

DRUGS (16)
  1. HULIO [Suspect]
     Active Substance: ADALIMUMAB-FKJP
     Indication: Crohn^s disease
     Dosage: UNK
     Dates: end: 202003
  2. HULIO [Suspect]
     Active Substance: ADALIMUMAB-FKJP
     Indication: Arthropathy
     Dosage: UNK
     Route: 058
     Dates: start: 2019
  3. HULIO [Suspect]
     Active Substance: ADALIMUMAB-FKJP
     Indication: Iridocyclitis
     Dosage: UNK
     Route: 058
     Dates: start: 201909, end: 2020
  4. HULIO [Suspect]
     Active Substance: ADALIMUMAB-FKJP
     Indication: Spondyloarthropathy
  5. ADALIMUMAB [Suspect]
     Active Substance: ADALIMUMAB
     Indication: Spondyloarthropathy
     Dosage: UNK
     Route: 065
     Dates: end: 2019
  6. ADALIMUMAB [Suspect]
     Active Substance: ADALIMUMAB
     Indication: Iridocyclitis
     Dosage: UNK
     Route: 065
     Dates: start: 201909, end: 202003
  7. ADALIMUMAB [Suspect]
     Active Substance: ADALIMUMAB
     Indication: Crohn^s disease
  8. ADALIMUMAB [Suspect]
     Active Substance: ADALIMUMAB
     Indication: Spondylitis
  9. METHOTREXATE [Suspect]
     Active Substance: METHOTREXATE
     Indication: Crohn^s disease
     Dosage: UNK
  10. METHOTREXATE [Suspect]
     Active Substance: METHOTREXATE
     Indication: Arthropathy
  11. METHOTREXATE [Suspect]
     Active Substance: METHOTREXATE
     Indication: Iridocyclitis
  12. METHOTREXATE [Suspect]
     Active Substance: METHOTREXATE
     Indication: Spondylitis
  13. METHOTREXATE [Suspect]
     Active Substance: METHOTREXATE
     Indication: Spondyloarthropathy
  14. METHOTREXATE [Concomitant]
     Active Substance: METHOTREXATE
     Indication: Spondyloarthropathy
     Dosage: UNK
     Dates: end: 2019
  15. METHOTREXATE [Concomitant]
     Active Substance: METHOTREXATE
     Indication: Iridocyclitis
     Dosage: UNK
  16. METHOTREXATE [Concomitant]
     Active Substance: METHOTREXATE
     Indication: Crohn^s disease
     Dosage: UNK

REACTIONS (17)
  - Metastases to lung [Unknown]
  - Granuloma [Unknown]
  - Aspergillus infection [Unknown]
  - Sputum abnormal [Unknown]
  - Vasculitis [Unknown]
  - Vascular stenosis [Unknown]
  - Traumatic lung injury [Unknown]
  - Respiratory tract infection [Not Recovered/Not Resolved]
  - Pseudomonas test positive [Recovering/Resolving]
  - Bronchial irritation [Unknown]
  - Cryptococcosis [Unknown]
  - Bronchitis [Unknown]
  - Inflammation [Unknown]
  - Off label use [Unknown]
  - Lung disorder [Unknown]
  - Unevaluable event [Unknown]
  - Pneumonia pseudomonal [Unknown]

NARRATIVE: CASE EVENT DATE: 20190201
